FAERS Safety Report 13388889 (Version 1)
Quarter: 2017Q1

REPORT INFORMATION
  Report Type: Spontaneous
  Country: US (occurrence: US)
  Receive Date: 20170330
  Receipt Date: 20170330
  Transmission Date: 20170429
  Serious: Yes (Other)
  Sender: FDA-Public Use
  Company Number: US-APOTEX-2017AP009209

PATIENT
  Age: 72 Year
  Sex: Male

DRUGS (3)
  1. VALPROIC ACID [D] [Interacting]
     Active Substance: VALPROIC ACID
     Dosage: 1000 MG, BID
     Route: 048
  2. VALPROIC ACID [D] [Suspect]
     Active Substance: VALPROIC ACID
     Indication: SEIZURE
     Dosage: UNK
     Route: 065
  3. ERTAPENEM [Interacting]
     Active Substance: ERTAPENEM
     Indication: PRODUCT USED FOR UNKNOWN INDICATION
     Route: 065

REACTIONS (2)
  - Inhibitory drug interaction [Unknown]
  - Seizure [Recovered/Resolved]
